FAERS Safety Report 4921107-6 (Version None)
Quarter: 2006Q1

REPORT INFORMATION
  Report Type: 
  Country: None (occurrence: None)
  Receive Date: 20060223
  Receipt Date: 20051025
  Transmission Date: 20060701
  Serious: Yes (Hospitalization)
  Sender: FDA-Public Use
  Company Number: US-MERCK-0510USA09016

PATIENT
  Age: 67 Year
  Sex: Male
  Weight: 75 kg

DRUGS (10)
  1. VIOXX [Suspect]
     Indication: RHEUMATOID ARTHRITIS
     Route: 048
     Dates: start: 20000502, end: 20040930
  2. PENTOXIFYLLINE [Concomitant]
     Route: 065
  3. NEOMYCIN [Concomitant]
     Route: 065
  4. AUGMENTIN '125' [Concomitant]
     Route: 065
  5. OXYCODONE [Concomitant]
     Route: 065
     Dates: start: 20010515, end: 20010101
  6. CIPRO [Concomitant]
     Route: 065
  7. VIAGRA [Concomitant]
     Indication: ERECTILE DYSFUNCTION
     Route: 065
  8. LOPROX [Concomitant]
     Route: 065
  9. AGGRENOX [Concomitant]
     Route: 065
     Dates: start: 20031121, end: 20051101
  10. ZOCOR [Concomitant]
     Route: 048
     Dates: start: 20031001, end: 20041101

REACTIONS (4)
  - BLOOD CHOLESTEROL INCREASED [None]
  - CEREBROVASCULAR ACCIDENT [None]
  - DYSPEPSIA [None]
  - HYPERTENSION [None]
